FAERS Safety Report 4442987-7 (Version None)
Quarter: 2004Q3

REPORT INFORMATION
  Report Type: 
  Country: None (occurrence: None)
  Receive Date: 20040728
  Receipt Date: 20040513
  Transmission Date: 20050211
  Serious: No
  Sender: FDA-Public Use
  Company Number: USA040567690

PATIENT
  Age: 23 Year
  Sex: Female
  Weight: 57 kg

DRUGS (4)
  1. STRATTERA [Suspect]
     Indication: ATTENTION DEFICIT/HYPERACTIVITY DISORDER
     Dosage: 18 MG DAY
     Dates: end: 20040511
  2. RISPERDAL [Concomitant]
  3. COGENTIN [Concomitant]
  4. CLONIDINE HCL [Concomitant]

REACTIONS (3)
  - EXOPHTHALMOS [None]
  - GAZE PALSY [None]
  - VISION BLURRED [None]
